FAERS Safety Report 26058845 (Version 1)
Quarter: 2025Q4

REPORT INFORMATION
  Report Type: Spontaneous
  Country: TR (occurrence: TR)
  Receive Date: 20251118
  Receipt Date: 20251118
  Transmission Date: 20260118
  Serious: Yes (Hospitalization, Other)
  Sender: ABBVIE
  Company Number: TR-ABBVIE-6546630

PATIENT

DRUGS (1)
  1. HUMIRA [Suspect]
     Active Substance: ADALIMUMAB
     Indication: Spondylitis
     Route: 058

REACTIONS (9)
  - Surgery [Unknown]
  - Bone giant cell tumour [Unknown]
  - Herpes zoster [Unknown]
  - Non-Hodgkin^s lymphoma [Unknown]
  - COVID-19 [Unknown]
  - Pneumonia [Unknown]
  - Renal cell carcinoma [Unknown]
  - Drug ineffective [Unknown]
  - Demyelination [Unknown]
